FAERS Safety Report 20503974 (Version 1)
Quarter: 2022Q1

REPORT INFORMATION
  Report Type: Spontaneous
  Country: PL (occurrence: PL)
  Receive Date: 20220222
  Receipt Date: 20220222
  Transmission Date: 20220423
  Serious: Yes (Other)
  Sender: FDA-Public Use
  Company Number: PL-SUN PHARMACEUTICAL INDUSTRIES LTD-2022RR-326510

PATIENT
  Age: 18 Year
  Sex: Female

DRUGS (8)
  1. OLANZAPINE [Suspect]
     Active Substance: OLANZAPINE
     Indication: Product used for unknown indication
     Dosage: 20 MILLIGRAM, UNK
     Route: 065
  2. OLANZAPINE [Suspect]
     Active Substance: OLANZAPINE
     Dosage: 10 MG, UNKNOWN
     Route: 065
  3. OLANZAPINE [Suspect]
     Active Substance: OLANZAPINE
     Dosage: 15 MG, UNKNOWN
     Route: 065
  4. CARBAMAZEPINE [Concomitant]
     Active Substance: CARBAMAZEPINE
     Indication: Affective disorder
     Dosage: 400 MILLIGRAM, UNK
     Route: 065
  5. LITHIUM [Concomitant]
     Active Substance: LITHIUM
     Indication: Affective disorder
     Dosage: 2 DOSAGE FORM, DAILY, TABLETS
     Route: 065
  6. LITHIUM [Concomitant]
     Active Substance: LITHIUM
     Dosage: 2 DOSAGE FORM, DAILY, TABLETS
     Route: 065
  7. LEVOTHYROXINE [Concomitant]
     Active Substance: LEVOTHYROXINE
     Indication: Hypothyroidism
     Dosage: 25 UG, UNKNOWN
     Route: 065
  8. LEVOTHYROXINE [Concomitant]
     Active Substance: LEVOTHYROXINE
     Dosage: 50 UG, UNKNOWN
     Route: 065

REACTIONS (4)
  - Mental impairment [Unknown]
  - Tri-iodothyronine free decreased [Unknown]
  - Thyroxine free decreased [Unknown]
  - Somnolence [Recovered/Resolved]
